FAERS Safety Report 11192791 (Version 3)
Quarter: 2015Q4

REPORT INFORMATION
  Report Type: Report from Study
  Country: JP (occurrence: JP)
  Receive Date: 20150616
  Receipt Date: 20151022
  Transmission Date: 20160304
  Serious: Yes (Hospitalization, Other)
  Sender: FDA-Public Use
  Company Number: JP-009507513-1506JPN007170

PATIENT
  Age: 46 Year
  Sex: Male
  Weight: 40 kg

DRUGS (13)
  1. REBETOL [Suspect]
     Active Substance: RIBAVIRIN
     Dosage: 400 MG, QOD
     Route: 048
     Dates: start: 20131213, end: 20140227
  2. REBETOL [Suspect]
     Active Substance: RIBAVIRIN
     Indication: HEPATIC CIRRHOSIS
     Dosage: 400 MG, QD
     Route: 048
     Dates: start: 20130802, end: 20131121
  3. REBETOL [Suspect]
     Active Substance: RIBAVIRIN
     Dosage: 200 MG, QD
     Route: 048
     Dates: start: 20131122, end: 20131212
  4. REBETOL [Suspect]
     Active Substance: RIBAVIRIN
     Dosage: 200 MG, QOD
     Route: 048
     Dates: start: 20131213, end: 20140227
  5. LOXONIN [Concomitant]
     Active Substance: LOXOPROFEN SODIUM
     Indication: ABDOMINAL PAIN
     Dosage: 60 MG, AS NEEDED, FORMULATION POR
     Route: 048
     Dates: start: 20130510, end: 20140430
  6. ALDACTONE [Concomitant]
     Active Substance: SPIRONOLACTONE
     Indication: PLEURAL EFFUSION
  7. LASIX [Concomitant]
     Active Substance: FUROSEMIDE
     Indication: PLEURAL EFFUSION
  8. LUPRAC [Concomitant]
     Active Substance: TORSEMIDE
     Indication: PLEURAL EFFUSION
  9. ALDACTONE [Concomitant]
     Active Substance: SPIRONOLACTONE
     Indication: OEDEMA DUE TO HEPATIC DISEASE
     Dosage: 25 MG, BID, FORMULATION POR
     Route: 048
     Dates: start: 20130509
  10. PEGINTRON [Suspect]
     Active Substance: PEGINTERFERON ALFA-2B
     Indication: HEPATIC CIRRHOSIS
     Dosage: 70 MICROGRAM, QW
     Route: 058
     Dates: start: 20130802, end: 20140221
  11. PARIET [Concomitant]
     Active Substance: RABEPRAZOLE SODIUM
     Indication: GASTROOESOPHAGEAL REFLUX DISEASE
     Dosage: 10 MG, QD, FORMULATION: POR
     Route: 048
     Dates: start: 20130719
  12. LUPRAC [Concomitant]
     Active Substance: TORSEMIDE
     Indication: OEDEMA DUE TO HEPATIC DISEASE
     Dosage: 4 MG, QD, FORMULATION POR
     Route: 048
     Dates: start: 20130430
  13. LASIX [Concomitant]
     Active Substance: FUROSEMIDE
     Indication: OEDEMA DUE TO HEPATIC DISEASE
     Dosage: 20 MG, BID, FORMULATION POR
     Route: 048
     Dates: start: 20130509

REACTIONS (9)
  - Hyperuricaemia [Unknown]
  - Hypoalbuminaemia [Unknown]
  - Pruritus [Unknown]
  - Gastric ulcer [Unknown]
  - Disseminated intravascular coagulation [Recovering/Resolving]
  - Joint abscess [Recovering/Resolving]
  - Hepatic encephalopathy [Recovering/Resolving]
  - Gastroenteritis bacterial [Recovering/Resolving]
  - Rash [Recovering/Resolving]

NARRATIVE: CASE EVENT DATE: 20130823
